FAERS Safety Report 6376678-2 (Version None)
Quarter: 2009Q3

REPORT INFORMATION
  Report Type: 
  Country: None (occurrence: None)
  Receive Date: 20090925
  Receipt Date: 20090915
  Transmission Date: 20100115
  Serious: No
  Sender: FDA-Public Use
  Company Number: US-B.I. PHARMACEUTICALS,INC./RIDGEFIELD-2009-BP-10924BP

PATIENT
  Age: 6 Year
  Sex: Male

DRUGS (3)
  1. CLONIDINE HCL [Suspect]
     Indication: ABNORMAL BEHAVIOUR
     Route: 048
     Dates: start: 20090101
  2. ABILIFY [Concomitant]
     Indication: ABNORMAL BEHAVIOUR
  3. MULTI-VITAMINS [Concomitant]
     Indication: VITAMIN SUPPLEMENTATION

REACTIONS (1)
  - ABNORMAL BEHAVIOUR [None]
